FAERS Safety Report 8530840-9 (Version None)
Quarter: 2012Q3

REPORT INFORMATION
  Report Type: 
  Country: None (occurrence: None)
  Receive Date: 20120723
  Receipt Date: 20120709
  Transmission Date: 20120928
  Serious: Yes (Other)
  Sender: FDA-Public Use
  Company Number: JP-ROCHE-1088369

PATIENT
  Age: 84 Year
  Sex: Male

DRUGS (2)
  1. VERTEPORFIN [Suspect]
     Indication: AGE-RELATED MACULAR DEGENERATION
     Route: 042
  2. LUCENTIS [Suspect]
     Indication: AGE-RELATED MACULAR DEGENERATION
     Route: 050

REACTIONS (2)
  - DETACHMENT OF RETINAL PIGMENT EPITHELIUM [None]
  - RETINAL PIGMENT EPITHELIAL TEAR [None]
